FAERS Safety Report 22929593 (Version 2)
Quarter: 2023Q4

REPORT INFORMATION
  Report Type: Other
  Country: ES (occurrence: None)
  Receive Date: 20230911
  Receipt Date: 20231117
  Transmission Date: 20240110
  Serious: Yes (Hospitalization)
  Sender: FDA-Public Use
  Company Number: ES-ROCHE-3417489

PATIENT
  Age: 62 Year
  Sex: Female

DRUGS (1)
  1. ATEZOLIZUMAB [Suspect]
     Active Substance: ATEZOLIZUMAB
     Indication: Lung squamous cell carcinoma metastatic
     Route: 065

REACTIONS (1)
  - Acquired epidermolysis bullosa [Recovering/Resolving]
